FAERS Safety Report 16687798 (Version 4)
Quarter: 2019Q3

REPORT INFORMATION
  Report Type: Spontaneous
  Country: JP (occurrence: JP)
  Receive Date: 20190809
  Receipt Date: 20190918
  Transmission Date: 20191004
  Serious: Yes (Other)
  Sender: FDA-Public Use
  Company Number: JP-ASTRAZENECA-2019SF12485

PATIENT
  Age: 80 Year
  Sex: Male

DRUGS (3)
  1. CARBOPLATIN. [Suspect]
     Active Substance: CARBOPLATIN
     Dosage: DOES UNKNOWN
     Route: 041
     Dates: start: 20190625, end: 20190716
  2. RADIOTHERAPY [Suspect]
     Active Substance: RADIATION THERAPY
     Dosage: 60GY/30FR)
     Route: 065
     Dates: start: 20190604
  3. IMFINZI [Suspect]
     Active Substance: DURVALUMAB
     Indication: NON-SMALL CELL LUNG CANCER
     Route: 041
     Dates: start: 20190718, end: 20190718

REACTIONS (2)
  - Radiation pneumonitis [Not Recovered/Not Resolved]
  - Platelet count decreased [Recovered/Resolved]

NARRATIVE: CASE EVENT DATE: 20190717
